FAERS Safety Report 19460996 (Version 2)
Quarter: 2021Q3

REPORT INFORMATION
  Report Type: Spontaneous
  Country: JP (occurrence: JP)
  Receive Date: 20210625
  Receipt Date: 20210709
  Transmission Date: 20211014
  Serious: Yes (Other)
  Sender: FDA-Public Use
  Company Number: JP-TAKEDA-2021TJP026749AA

PATIENT
  Age: 13 Year
  Sex: Male

DRUGS (5)
  1. TRINTELLIX [Suspect]
     Active Substance: VORTIOXETINE HYDROBROMIDE
     Indication: APATHY
     Dosage: 10 MILLIGRAM, QD
     Route: 048
     Dates: start: 20210407, end: 20210412
  2. TRINTELLIX [Suspect]
     Active Substance: VORTIOXETINE HYDROBROMIDE
     Indication: SOCIAL ANXIETY DISORDER
  3. TANDOSPIRONE CITRATE [Concomitant]
     Active Substance: TANDOSPIRONE CITRATE
     Dosage: UNK
     Route: 065
  4. SODIUM VALPROATE [Concomitant]
     Active Substance: VALPROATE SODIUM
     Indication: MOOD SWINGS
     Dosage: 100 MILLIGRAM, QD
     Route: 048
     Dates: start: 20201113
  5. LATUDA [Concomitant]
     Active Substance: LURASIDONE HYDROCHLORIDE
     Indication: MOOD SWINGS
     Dosage: 20 MILLIGRAM, QD
     Route: 048
     Dates: start: 20201023

REACTIONS (6)
  - Aggression [Recovered/Resolved]
  - Product administered to patient of inappropriate age [Unknown]
  - Condition aggravated [Recovered/Resolved]
  - Hallucination, auditory [Recovered/Resolved]
  - Feeling of despair [Recovered/Resolved]
  - Off label use [Unknown]

NARRATIVE: CASE EVENT DATE: 20210407
